FAERS Safety Report 4296768-8 (Version None)
Quarter: 2004Q1

REPORT INFORMATION
  Report Type: 
  Country: None (occurrence: None)
  Receive Date: 20040217
  Receipt Date: 20030903
  Transmission Date: 20041129
  Serious: Yes (Hospitalization, Other)
  Sender: FDA-Public Use
  Company Number: PHBS2003JP09475

PATIENT
  Age: 71 Year
  Sex: Male
  Weight: 65 kg

DRUGS (6)
  1. GLEEVEC [Suspect]
     Indication: CHRONIC MYELOID LEUKAEMIA
     Dosage: 400 MG/D
     Route: 048
     Dates: start: 20011217, end: 20020924
  2. ZYLORIC ^FAES^ [Concomitant]
     Dosage: 3 DF/D
     Route: 048
     Dates: start: 20010109, end: 20020924
  3. ZYLORIC ^FAES^ [Concomitant]
     Dosage: 100 MG/D
     Route: 048
     Dates: start: 20030101
  4. PREDONINE [Concomitant]
     Route: 048
     Dates: start: 20010109, end: 20021029
  5. LASIX [Suspect]
     Indication: OEDEMA
     Dosage: 20 MG/D
     Route: 048
     Dates: start: 20020305, end: 20021029
  6. ALTAT [Suspect]
     Indication: PROPHYLAXIS AGAINST GASTROINTESTINAL ULCER
     Dosage: 2 DF/D
     Route: 048
     Dates: start: 20011217, end: 20020924

REACTIONS (6)
  - DERMATITIS EXFOLIATIVE [None]
  - GENERALISED ERYTHEMA [None]
  - GENERALISED OEDEMA [None]
  - PSORIASIS [None]
  - RASH [None]
  - SCAR [None]
